FAERS Safety Report 10227564 (Version 1)
Quarter: 2014Q2

REPORT INFORMATION
  Report Type: Report from Study
  Country: JP (occurrence: JP)
  Receive Date: 20140610
  Receipt Date: 20140610
  Transmission Date: 20141212
  Serious: Yes (Other)
  Sender: FDA-Public Use
  Company Number: PHHY2014JP070027

PATIENT
  Age: 71 Year
  Sex: Male

DRUGS (2)
  1. GLIVEC [Suspect]
     Indication: CHRONIC MYELOID LEUKAEMIA
     Dosage: UNK UKN, UNK
     Route: 048
     Dates: start: 20110128, end: 20120529
  2. NO TREATMENT RECEIVED [Suspect]
     Dosage: UNK UKN, UNK

REACTIONS (1)
  - Blood creatine phosphokinase increased [Recovered/Resolved]
